FAERS Safety Report 24367019 (Version 1)
Quarter: 2024Q3

REPORT INFORMATION
  Report Type: Spontaneous
  Country: AU (occurrence: AU)
  Receive Date: 20240926
  Receipt Date: 20240926
  Transmission Date: 20241017
  Serious: Yes (Other)
  Sender: PFIZER
  Company Number: AU-PFIZER INC-PV202400124501

PATIENT
  Age: 80 Year
  Sex: Female

DRUGS (5)
  1. TOBRAMYCIN [Suspect]
     Active Substance: TOBRAMYCIN\TOBRAMYCIN SULFATE
     Indication: Skin ulcer
     Dosage: 180 MG
     Dates: end: 20010623
  2. GENTAMICIN SULFATE [Suspect]
     Active Substance: GENTAMICIN SULFATE
     Indication: Skin ulcer
     Dosage: 160 MG
     Dates: start: 20010618, end: 20010621
  3. DAPA [INDAPAMIDE] [Concomitant]
     Dosage: 1 DOSE UNSPECIFIED
     Route: 048
  4. FOLIC ACID [Concomitant]
     Active Substance: FOLIC ACID
     Dosage: 1 DOSE
     Route: 048
  5. PRINIVIL [Concomitant]
     Active Substance: LISINOPRIL
     Dosage: 20 MG
     Route: 048

REACTIONS (2)
  - Dermatitis bullous [Recovered/Resolved]
  - Rash erythematous [Recovered/Resolved]

NARRATIVE: CASE EVENT DATE: 20010621
